FAERS Safety Report 21997319 (Version 2)
Quarter: 2023Q2

REPORT INFORMATION
  Report Type: Spontaneous
  Country: US (occurrence: US)
  Receive Date: 20230216
  Receipt Date: 20230504
  Transmission Date: 20230721
  Serious: No
  Sender: FDA-Public Use
  Company Number: US-drreddys-SPO/USA/23/0159469

PATIENT
  Age: 56 Year
  Sex: Female
  Weight: 90.800 kg

DRUGS (1)
  1. SUMATRIPTAN [Suspect]
     Active Substance: SUMATRIPTAN
     Indication: Migraine
     Dosage: 6MG/0.5ML
     Route: 058

REACTIONS (2)
  - Product dose omission issue [Unknown]
  - Device failure [Unknown]
